FAERS Safety Report 6263702-0 (Version None)
Quarter: 2009Q3

REPORT INFORMATION
  Report Type: 
  Country: None (occurrence: None)
  Receive Date: 20090708
  Receipt Date: 20090708
  Transmission Date: 20100115
  Serious: Yes (Disabling, Other)
  Sender: FDA-Public Use
  Company Number: None

PATIENT
  Age: 37 Year
  Sex: Female
  Weight: 81.8 kg

DRUGS (1)
  1. ZICAM NO DRIP LIQUID NASAL GEL EXTREME CONGESTION RELIEF MATRIXX INITI [Suspect]
     Indication: NASOPHARYNGITIS

REACTIONS (1)
  - ANOSMIA [None]
